FAERS Safety Report 16047935 (Version 1)
Quarter: 2019Q1

REPORT INFORMATION
  Report Type: Spontaneous
  Country: FR (occurrence: FR)
  Receive Date: 20190307
  Receipt Date: 20190307
  Transmission Date: 20190418
  Serious: Yes (Death)
  Sender: FDA-Public Use
  Company Number: FR-PROVELL PHARMACEUTICALS-2063662

PATIENT
  Age: 83 Year
  Sex: Female
  Weight: 40 kg

DRUGS (10)
  1. EUTHYROX [Suspect]
     Active Substance: LEVOTHYROXINE SODIUM
     Indication: HYPOTHYROIDISM
     Route: 048
     Dates: end: 20181029
  2. FRAGMINE [Suspect]
     Active Substance: DALTEPARIN SODIUM
     Route: 058
     Dates: end: 20181029
  3. ULTRA LEVURE [Suspect]
     Active Substance: SACCHAROMYCES CEREVISIAE
     Route: 048
     Dates: end: 20181029
  4. PARACETAMOL [Suspect]
     Active Substance: ACETAMINOPHEN
     Route: 048
     Dates: end: 20181029
  5. SERESTA [Suspect]
     Active Substance: OXAZEPAM
     Route: 048
     Dates: end: 20181029
  6. IMOVANE [Suspect]
     Active Substance: ZOPICLONE
     Route: 048
     Dates: end: 20181029
  7. NEBIVOLOL. [Suspect]
     Active Substance: NEBIVOLOL
     Route: 048
     Dates: end: 20181029
  8. METOJECT [Suspect]
     Active Substance: METHOTREXATE SODIUM
     Route: 058
     Dates: end: 20181011
  9. ACIDE FOLIQUE [Suspect]
     Active Substance: FOLIC ACID
     Route: 048
     Dates: end: 20181029
  10. ACLASTA [Suspect]
     Active Substance: ZOLEDRONIC ACID
     Dates: end: 20181029

REACTIONS (4)
  - Sudden death [Fatal]
  - Fall [Fatal]
  - Femur fracture [Fatal]
  - Lung disorder [Fatal]

NARRATIVE: CASE EVENT DATE: 20180920
